FAERS Safety Report 23795147 (Version 3)
Quarter: 2024Q2

REPORT INFORMATION
  Report Type: Spontaneous
  Country: CA (occurrence: CA)
  Receive Date: 20240429
  Receipt Date: 20240610
  Transmission Date: 20240716
  Serious: Yes (Other)
  Sender: FDA-Public Use
  Company Number: CA-TEVA-VS-3190808

PATIENT
  Age: 52 Year
  Sex: Male

DRUGS (29)
  1. CAPECITABINE [Suspect]
     Active Substance: CAPECITABINE
     Indication: Ductal adenocarcinoma of pancreas
     Route: 065
  2. GEMCITABINE [Suspect]
     Active Substance: GEMCITABINE
     Indication: Pancreatic carcinoma metastatic
     Route: 065
  3. KEYTRUDA [Suspect]
     Active Substance: PEMBROLIZUMAB
     Indication: Pancreatic carcinoma metastatic
     Route: 065
  4. LORBRENA [Suspect]
     Active Substance: LORLATINIB
     Indication: Pancreatic carcinoma metastatic
     Route: 065
  5. TRASTUZUMAB [Suspect]
     Active Substance: TRASTUZUMAB
     Indication: Pancreatic carcinoma metastatic
     Route: 065
  6. ALUNBRIG [Concomitant]
     Active Substance: BRIGATINIB
     Indication: Product used for unknown indication
     Route: 065
  7. CISPLATIN [Concomitant]
     Active Substance: CISPLATIN
     Indication: Product used for unknown indication
     Route: 042
  8. ENHERTU [Concomitant]
     Active Substance: FAM-TRASTUZUMAB DERUXTECAN-NXKI
     Indication: Product used for unknown indication
     Dosage: POWDER FOR SOLUTION INTRAVENOUS
     Route: 065
  9. FLUOROURACIL [Concomitant]
     Active Substance: FLUOROURACIL
     Indication: Product used for unknown indication
     Route: 065
  10. LEUCOVORIN [Concomitant]
     Active Substance: LEUCOVORIN\LEUCOVORIN CALCIUM
     Indication: Product used for unknown indication
     Dosage: 00566702
     Route: 065
  11. IRINOTECAN HYDROCHLORIDE [Concomitant]
     Active Substance: IRINOTECAN HYDROCHLORIDE
     Indication: Product used for unknown indication
     Dosage: SOLUTION INTRAVENOUS
     Route: 065
  12. MITOMYCIN [Concomitant]
     Active Substance: MITOMYCIN
     Indication: Product used for unknown indication
     Dosage: FOR INJECTION, POWDER FOR SOLUTION INTRAVESICULAR
     Route: 065
  13. PACLITAXEL [Concomitant]
     Active Substance: PACLITAXEL
     Indication: Product used for unknown indication
     Dosage: INJECTION, LIQUID INTRAVENOUS
     Route: 065
  14. BEVACIZUMAB [Concomitant]
     Active Substance: BEVACIZUMAB
     Indication: Product used for unknown indication
     Route: 042
  15. DEMCIZUMAB [Concomitant]
     Active Substance: DEMCIZUMAB
     Indication: Product used for unknown indication
     Route: 065
  16. AMILOMER [Concomitant]
     Active Substance: AMILOMER
     Indication: Product used for unknown indication
     Route: 065
  17. ENTRECTINIB [Concomitant]
     Active Substance: ENTRECTINIB
     Indication: Product used for unknown indication
     Route: 065
  18. LIPIODOL [Concomitant]
     Active Substance: ETHIODIZED OIL
     Indication: Product used for unknown indication
     Route: 065
  19. OSIMERTINIB [Concomitant]
     Active Substance: OSIMERTINIB
     Indication: Product used for unknown indication
     Route: 065
  20. PERTUZUMAB [Concomitant]
     Active Substance: PERTUZUMAB
     Indication: Product used for unknown indication
     Route: 065
  21. DOCETAXEL [Suspect]
     Active Substance: DOCETAXEL\DOCETAXEL ANHYDROUS
     Indication: Product used for unknown indication
     Route: 065
  22. PEMETREXED [Suspect]
     Active Substance: PEMETREXED
     Indication: Pancreatic carcinoma metastatic
     Dosage: POWDER FOR SOLUTION
     Route: 065
  23. OXALIPLATIN [Suspect]
     Active Substance: OXALIPLATIN
     Indication: Pancreatic carcinoma metastatic
     Route: 065
  24. AMILOMER [Concomitant]
     Active Substance: AMILOMER
     Indication: Product used for unknown indication
     Route: 065
  25. ETHIODIZED OIL [Concomitant]
     Active Substance: ETHIODIZED OIL
     Indication: Product used for unknown indication
  26. PEMBROLIZUMAB [Suspect]
     Active Substance: PEMBROLIZUMAB
     Indication: Product used for unknown indication
     Route: 065
  27. TRASTUZUMAB [Concomitant]
     Active Substance: TRASTUZUMAB
     Indication: Metastases to liver
  28. DOCETAXEL [Concomitant]
     Active Substance: DOCETAXEL\DOCETAXEL ANHYDROUS
     Indication: Metastases to liver
  29. LORBRENA [Concomitant]
     Active Substance: LORLATINIB
     Indication: Metastases to liver

REACTIONS (5)
  - Disease progression [Unknown]
  - Metastases to liver [Unknown]
  - Off label use [Unknown]
  - Pancytopenia [Unknown]
  - Metastases to central nervous system [Unknown]
